FAERS Safety Report 9087303 (Version 1)
Quarter: 2013Q1

REPORT INFORMATION
  Report Type: Spontaneous
  Country: US (occurrence: US)
  Receive Date: 20130130
  Receipt Date: 20130130
  Transmission Date: 20140127
  Serious: No
  Sender: FDA-Public Use
  Company Number: US-ABBOTT-12P-163-0988988-00

PATIENT
  Sex: Male
  Weight: 118.04 kg

DRUGS (3)
  1. HUMIRA [Suspect]
  2. PREDNISONE [Concomitant]
     Indication: PYODERMA GANGRENOSUM
  3. MONOCYCLINE [Concomitant]
     Indication: PYODERMA GANGRENOSUM

REACTIONS (1)
  - Off label use [Unknown]
